FAERS Safety Report 5872733-1 (Version None)
Quarter: 2008Q3

REPORT INFORMATION
  Report Type: 
  Country: None (occurrence: None)
  Receive Date: 20080902
  Receipt Date: 20060227
  Transmission Date: 20090109
  Serious: Yes (Hospitalization, Other)
  Sender: FDA-Public Use
  Company Number: 2008AL009366

PATIENT
  Age: 64 Year
  Sex: Male

DRUGS (7)
  1. FEVERALL [Suspect]
     Dosage: X1;
  2. FERROUS FUMARATE [Concomitant]
  3. REMICADE [Concomitant]
  4. AZATHIOPRINE [Concomitant]
  5. ACETAMINOPHEN W/ CODEINE [Concomitant]
  6. OMEPRAZOLE [Concomitant]
  7. ATENOLOL [Concomitant]

REACTIONS (3)
  - INCORRECT DOSE ADMINISTERED [None]
  - PERSONALITY CHANGE [None]
  - SUICIDE ATTEMPT [None]
